FAERS Safety Report 6359018-4 (Version None)
Quarter: 2009Q3

REPORT INFORMATION
  Report Type: 
  Country: None (occurrence: None)
  Receive Date: 20090917
  Receipt Date: 20090911
  Transmission Date: 20100115
  Serious: Yes (Other)
  Sender: FDA-Public Use
  Company Number: AU-JNJCH-2009024474

PATIENT
  Sex: Female

DRUGS (1)
  1. LISTERINE WHITENING PRE-BRUSH RINSE [Suspect]
     Indication: DRUG USE FOR UNKNOWN INDICATION
     Dosage: TEXT:ONCE
     Route: 048
     Dates: start: 20090901, end: 20090901

REACTIONS (3)
  - MEDICATION ERROR [None]
  - STOMATITIS [None]
  - THERMAL BURN [None]
